FAERS Safety Report 4687689-7 (Version None)
Quarter: 2005Q2

REPORT INFORMATION
  Report Type: 
  Country: None (occurrence: None)
  Receive Date: 20050608
  Receipt Date: 20050608
  Transmission Date: 20051028
  Serious: Yes (Hospitalization)
  Sender: FDA-Public Use
  Company Number: None

PATIENT
  Age: 66 Year
  Sex: Male
  Weight: 91 kg

DRUGS (10)
  1. CCNU (LOMUSTINE) [Suspect]
     Indication: LUNG NEOPLASM MALIGNANT
     Dosage: 75MG/M2; PO; Q 3 WKS
     Route: 048
     Dates: start: 20050511
  2. CCNU (LOMUSTINE) [Suspect]
     Indication: LUNG NEOPLASM MALIGNANT
     Dosage: 75MG/M2; PO; Q 3 WKS
     Route: 048
     Dates: start: 20050531
  3. GLIPIZIDE [Concomitant]
  4. PLAVIX [Concomitant]
  5. LIPITOR [Concomitant]
  6. TOPROL-XL [Concomitant]
  7. METFORMIN HCL [Concomitant]
  8. FOSINOPRIL SODIUM [Concomitant]
  9. ASPIRIN [Concomitant]
  10. NITROGLYCERIN [Concomitant]

REACTIONS (4)
  - BACTERAEMIA [None]
  - BLOOD CULTURE POSITIVE [None]
  - CHILLS [None]
  - INFECTION [None]
